FAERS Safety Report 8164122-4 (Version None)
Quarter: 2012Q1

REPORT INFORMATION
  Report Type: 
  Country: None (occurrence: None)
  Receive Date: 20120224
  Receipt Date: 20120222
  Transmission Date: 20120608
  Serious: Yes (Death, Other)
  Sender: FDA-Public Use
  Company Number: US-PFIZER INC-2012019915

PATIENT
  Sex: Male

DRUGS (9)
  1. XANAX [Concomitant]
  2. LYRICA [Suspect]
     Indication: PAIN
     Dosage: 75 MG, 2X/DAY
     Route: 048
  3. LYRICA [Suspect]
     Indication: FIBROMYALGIA
     Dosage: 50 MG, 2X/DAY
     Dates: start: 20111222, end: 20111227
  4. LYRICA [Suspect]
     Indication: NECK PAIN
  5. FENTANYL [Concomitant]
  6. VALIUM [Concomitant]
  7. PREVACID [Concomitant]
  8. OXYCODONE [Concomitant]
  9. LYRICA [Suspect]
     Indication: BACK PAIN

REACTIONS (2)
  - COMPLETED SUICIDE [None]
  - DEPRESSION [None]
